FAERS Safety Report 13588404 (Version 1)
Quarter: 2017Q2

REPORT INFORMATION
  Report Type: Spontaneous
  Country: PE (occurrence: PE)
  Receive Date: 20170529
  Receipt Date: 20170529
  Transmission Date: 20170830
  Serious: Yes (Hospitalization)
  Sender: FDA-Public Use
  Company Number: PE-GLAXOSMITHKLINE-PE2017GSK076644

PATIENT
  Sex: Male

DRUGS (1)
  1. SERETIDE [Suspect]
     Active Substance: FLUTICASONE PROPIONATE\SALMETEROL XINAFOATE
     Indication: ASTHMA
     Dosage: 125 UNK, QID
     Route: 055
     Dates: start: 201004

REACTIONS (3)
  - Dysphagia [Not Recovered/Not Resolved]
  - Surgery [Recovering/Resolving]
  - Oesophagitis [Unknown]
